FAERS Safety Report 23011756 (Version 2)
Quarter: 2023Q4

REPORT INFORMATION
  Report Type: Report from Study
  Country: CA (occurrence: CA)
  Receive Date: 20230929
  Receipt Date: 20231002
  Transmission Date: 20240109
  Serious: Yes (Death)
  Sender: FDA-Public Use
  Company Number: CA-ABBVIE-5428706

PATIENT
  Age: 81 Year
  Sex: Male

DRUGS (2)
  1. LUPRON DEPOT [Suspect]
     Active Substance: LEUPROLIDE ACETATE
     Indication: Prostate cancer
     Route: 030
     Dates: start: 20221221, end: 20230422
  2. COLCHICINE [Concomitant]
     Active Substance: COLCHICINE
     Indication: Product used for unknown indication
     Dosage: 2 DOSES
     Dates: start: 20230926

REACTIONS (4)
  - Blood urine present [Fatal]
  - Haemoglobin decreased [Fatal]
  - Melaena [Fatal]
  - Anaemia [Unknown]

NARRATIVE: CASE EVENT DATE: 20230927
